FAERS Safety Report 7611978-7 (Version None)
Quarter: 2011Q3

REPORT INFORMATION
  Report Type: 
  Country: None (occurrence: None)
  Receive Date: 20110715
  Receipt Date: 20110715
  Transmission Date: 20111222
  Serious: Yes (Other)
  Sender: FDA-Public Use
  Company Number: US-JNJFOC-20110308225

PATIENT
  Sex: Female
  Weight: 66.23 kg

DRUGS (4)
  1. METHOTREXATE [Concomitant]
     Indication: RHEUMATOID ARTHRITIS
     Route: 065
  2. SULFASALAZINE [Concomitant]
     Indication: RHEUMATOID ARTHRITIS
     Route: 065
  3. REMICADE [Suspect]
     Indication: RHEUMATOID ARTHRITIS
     Route: 042
     Dates: start: 20100818, end: 20110118
  4. REMICADE [Suspect]
     Route: 042
     Dates: start: 20100401

REACTIONS (4)
  - PNEUMONIA [None]
  - PNEUMOCOCCAL BACTERAEMIA [None]
  - PLEURAL EFFUSION [None]
  - SEPSIS [None]
